FAERS Safety Report 4738230-1 (Version None)
Quarter: 2005Q3

REPORT INFORMATION
  Report Type: 
  Country: None (occurrence: None)
  Receive Date: 20050809
  Receipt Date: 20050727
  Transmission Date: 20060218
  Serious: Yes (Death, Hospitalization)
  Sender: FDA-Public Use
  Company Number: HU-JNJFOC-20050705877

PATIENT
  Sex: Female

DRUGS (7)
  1. DOXORUBICIN HYDROCHLORIDE [Suspect]
     Indication: OVARIAN CANCER
     Dosage: X ONE CYCLE
     Route: 050
  2. ACENOCOVUMAROL [Concomitant]
     Indication: DEEP VEIN THROMBOSIS
     Route: 048
  3. AMILORID [Concomitant]
     Indication: ASCITES
     Route: 048
  4. RAMIPRIL [Concomitant]
     Indication: HYPERTENSION
     Route: 048
  5. ANTIDOLORICA [Concomitant]
     Indication: PAIN
     Route: 048
  6. ENALAPRIL MALEATE [Concomitant]
     Indication: HYPERTENSION
     Route: 048
  7. VERAPAMIL [Concomitant]
     Indication: HYPERTENSION
     Route: 048

REACTIONS (8)
  - ANAEMIA [None]
  - ASCITES [None]
  - ASTHENIA [None]
  - CARDIOPULMONARY FAILURE [None]
  - DEHYDRATION [None]
  - LEUKOCYTOSIS [None]
  - PAIN [None]
  - VOMITING [None]
